FAERS Safety Report 8847838 (Version 2)
Quarter: 2012Q4

REPORT INFORMATION
  Report Type: Report from Study
  Country: GR (occurrence: GR)
  Receive Date: 20121018
  Receipt Date: 20121107
  Transmission Date: 20130627
  Serious: Yes (Hospitalization)
  Sender: FDA-Public Use
  Company Number: GR-JNJFOC-20121008771

PATIENT
  Age: 37 Year
  Sex: Female
  Weight: 52.5 kg

DRUGS (3)
  1. REMICADE [Suspect]
     Indication: CROHN^S DISEASE
     Route: 042
     Dates: start: 20120624, end: 20120809
  2. CLARITHROMYCIN [Concomitant]
     Indication: RESPIRATORY TRACT INFECTION
     Route: 048
     Dates: start: 20121005, end: 20121010
  3. CEFUROXIME [Concomitant]
     Indication: RESPIRATORY TRACT INFECTION
     Dates: start: 20121005, end: 20121010

REACTIONS (1)
  - Oesophageal candidiasis [Recovered/Resolved]
